FAERS Safety Report 6555119-6 (Version None)
Quarter: 2010Q1

REPORT INFORMATION
  Report Type: 
  Country: None (occurrence: None)
  Receive Date: 20100126
  Receipt Date: 20100126
  Transmission Date: 20100710
  Serious: No
  Sender: FDA-Public Use
  Company Number: None

PATIENT
  Age: 71 Year
  Sex: Female
  Weight: 83.6887 kg

DRUGS (2)
  1. FORTICAL [Suspect]
     Indication: BONE DENSITY DECREASED
     Dosage: 1 SQUIRT NOSTRIL ROTUTION
     Route: 055
     Dates: start: 20061001, end: 20091201
  2. FORTICAL [Suspect]
     Indication: BONE DISORDER
     Dosage: 1 SQUIRT NOSTRIL ROTUTION
     Route: 055
     Dates: start: 20061001, end: 20091201

REACTIONS (2)
  - SINUS DISORDER [None]
  - UPPER RESPIRATORY TRACT INFECTION [None]
